FAERS Safety Report 9723040 (Version 1)
Quarter: 2013Q4

REPORT INFORMATION
  Report Type: Spontaneous
  Country: US (occurrence: None)
  Receive Date: 20131127
  Receipt Date: 20131127
  Transmission Date: 20140711
  Serious: Yes (Hospitalization)
  Sender: FDA-Public Use
  Company Number: None

PATIENT
  Age: 39 Year
  Sex: Male
  Weight: 123.38 kg

DRUGS (1)
  1. INVEGA [Suspect]
     Indication: SCHIZOAFFECTIVE DISORDER
     Route: 030

REACTIONS (4)
  - Drug hypersensitivity [None]
  - Urticaria [None]
  - Drug ineffective [None]
  - Laryngeal pain [None]
